FAERS Safety Report 7457133-5 (Version None)
Quarter: 2011Q2

REPORT INFORMATION
  Report Type: 
  Country: None (occurrence: None)
  Receive Date: 20110504
  Receipt Date: 20110421
  Transmission Date: 20111010
  Serious: Yes (Hospitalization)
  Sender: FDA-Public Use
  Company Number: US-ELI_LILLY_AND_COMPANY-US201102003187

PATIENT
  Sex: Female

DRUGS (21)
  1. ZYRTEC [Concomitant]
  2. FOLIC ACID [Concomitant]
  3. VITAMIN D [Concomitant]
  4. LUMIGAN [Concomitant]
     Indication: EYE DISORDER
  5. FISH OIL [Concomitant]
  6. NEXIUM [Concomitant]
  7. FLOVENT HFA [Concomitant]
  8. CENTRUM SILVER [Concomitant]
  9. TYLENOL (CAPLET) [Concomitant]
  10. METOPROLOL SUCCINATE [Concomitant]
  11. BENADRYL [Concomitant]
  12. FORTEO [Suspect]
     Indication: OSTEOPOROSIS
     Dosage: 20 UG, DAILY (1/D)
     Dates: start: 20101015
  13. FORTEO [Suspect]
     Dosage: 20 UG, DAILY (1/D)
  14. ORPHENADRINE CITRATE [Concomitant]
  15. PROAIR HFA [Concomitant]
  16. CALTRATE D                         /00944201/ [Concomitant]
  17. LIDODERM [Concomitant]
  18. PATADAY [Concomitant]
     Indication: EYE DISORDER
  19. SALSALATE [Concomitant]
  20. PRAZOSIN HCL [Concomitant]
  21. LIPITOR [Concomitant]

REACTIONS (5)
  - FALL [None]
  - BACK PAIN [None]
  - SURGERY [None]
  - PAIN IN EXTREMITY [None]
  - CRYING [None]
